FAERS Safety Report 7998641-8 (Version None)
Quarter: 2011Q4

REPORT INFORMATION
  Report Type: 
  Country: None (occurrence: None)
  Receive Date: 20111221
  Receipt Date: 20111212
  Transmission Date: 20120403
  Serious: Yes (Other)
  Sender: FDA-Public Use
  Company Number: DE-ALLERGAN-1116338US

PATIENT
  Age: 50 Year
  Sex: Female

DRUGS (1)
  1. OPTIVE [Suspect]
     Indication: PRODUCT USED FOR UNKNOWN INDICATION
     Dosage: UNK
     Dates: start: 20111101, end: 20111212

REACTIONS (1)
  - CONJUNCTIVITIS INFECTIVE [None]
